FAERS Safety Report 24093096 (Version 1)
Quarter: 2024Q3

REPORT INFORMATION
  Report Type: Spontaneous
  Country: US (occurrence: US)
  Receive Date: 20240715
  Receipt Date: 20240715
  Transmission Date: 20241016
  Serious: Yes (Hospitalization)
  Sender: FRESENIUS MEDICAL CARE
  Company Number: US-FMCRTG-FMC-2406-000755

PATIENT
  Age: 76 Year
  Sex: Female
  Weight: 106 kg

DRUGS (1)
  1. DELFLEX WITH DEXTROSE 1.5% LOW MAGNESIUM LOW CALCIUM [Suspect]
     Active Substance: CALCIUM CHLORIDE\DEXTROSE\MAGNESIUM CHLORIDE\SODIUM CHLORIDE\SODIUM LACTATE
     Indication: End stage renal disease
     Dosage: 2200 ML, FOLLOWED BY 4 CYCLES AT 1900 ML WITH NO LAST FILL OR DAYTIME EXCHANGE
     Route: 033
     Dates: start: 20240602

REACTIONS (1)
  - Peritonitis [Unknown]
